FAERS Safety Report 10348854 (Version 1)
Quarter: 2014Q3

REPORT INFORMATION
  Report Type: Spontaneous
  Country: GB (occurrence: None)
  Receive Date: 20140725
  Receipt Date: 20140725
  Transmission Date: 20150326
  Serious: Yes (Other)
  Sender: FDA-Public Use
  Company Number: AUR-APL-2014-07861

PATIENT
  Age: 16 Year
  Sex: Female
  Weight: 57.6 kg

DRUGS (4)
  1. CODEINE PHOSPHATE (CODEINE PHOSPHATE) [Concomitant]
     Active Substance: CODEINE PHOSPHATE
  2. PROPRANOLOL [Concomitant]
     Active Substance: PROPRANOLOL\PROPRANOLOL HYDROCHLORIDE
  3. PARACETAMOL (PARACETAMOL) [Concomitant]
     Active Substance: ACETAMINOPHEN
  4. SUMATRIPTAN [Suspect]
     Active Substance: SUMATRIPTAN
     Indication: MIGRAINE
     Route: 048
     Dates: start: 20140704

REACTIONS (3)
  - Slow speech [None]
  - Musculoskeletal stiffness [None]
  - Dysarthria [None]

NARRATIVE: CASE EVENT DATE: 20140704
